FAERS Safety Report 6847479-3 (Version None)
Quarter: 2010Q3

REPORT INFORMATION
  Report Type: 
  Country: None (occurrence: None)
  Receive Date: 20100716
  Receipt Date: 20100706
  Transmission Date: 20110219
  Serious: Yes (Other)
  Sender: FDA-Public Use
  Company Number: BR-PFIZER INC-2010083923

PATIENT
  Age: 83 Year
  Sex: Female
  Weight: 67 kg

DRUGS (6)
  1. XALATAN [Suspect]
     Indication: GLAUCOMA
     Dosage: 3 UG, 1X/DAY (ONE DROP IN EACH EYE ONCE DAILY).
     Route: 047
  2. CALCIUM [Concomitant]
     Indication: OSTEOARTHRITIS
     Dosage: UNK
  3. ANCORON [Concomitant]
     Indication: ARRHYTHMIA
     Dosage: UNK
     Dates: start: 20050101
  4. AZOPT [Concomitant]
     Indication: GLAUCOMA
     Dosage: UNK
  5. PIRENOXINE [Concomitant]
     Indication: CATARACT
     Dosage: UNK
  6. TAMARINE [Concomitant]
     Indication: CONSTIPATION
     Dosage: UNK
     Dates: start: 20090101

REACTIONS (2)
  - HEADACHE [None]
  - NERVOUSNESS [None]
